FAERS Safety Report 11652918 (Version 1)
Quarter: 2015Q4

REPORT INFORMATION
  Report Type: Spontaneous
  Country: CH (occurrence: CH)
  Receive Date: 20151022
  Receipt Date: 20151022
  Transmission Date: 20160304
  Serious: Yes (Death, Other)
  Sender: FDA-Public Use
  Company Number: CH-GILEAD-2015-0177199

PATIENT
  Age: 46 Year
  Sex: Male
  Weight: 104 kg

DRUGS (5)
  1. HARVONI [Suspect]
     Active Substance: LEDIPASVIR\SOFOSBUVIR
     Indication: CHRONIC HEPATITIS C
     Route: 048
     Dates: start: 20150831, end: 20150921
  2. DOLOPHINE [Concomitant]
     Active Substance: METHADONE HYDROCHLORIDE
     Route: 048
  3. COPEGUS [Suspect]
     Active Substance: RIBAVIRIN
     Indication: CHRONIC HEPATITIS C
     Route: 048
     Dates: start: 20150831, end: 20150921
  4. RIVOTRIL [Concomitant]
     Active Substance: CLONAZEPAM
     Route: 048
  5. DUPHALAC [Concomitant]
     Active Substance: LACTULOSE
     Indication: CONSTIPATION
     Route: 048

REACTIONS (7)
  - Pancytopenia [Fatal]
  - Leukopenia [Fatal]
  - Normochromic normocytic anaemia [Fatal]
  - Hepatic cirrhosis [Fatal]
  - Thrombocytopenia [Fatal]
  - Peritonitis bacterial [Fatal]
  - Neutropenia [Fatal]

NARRATIVE: CASE EVENT DATE: 2015
